FAERS Safety Report 18244025 (Version 4)
Quarter: 2020Q4

REPORT INFORMATION
  Report Type: Report from Study
  Country: US (occurrence: US)
  Receive Date: 20200908
  Receipt Date: 20201119
  Transmission Date: 20210113
  Serious: No
  Sender: FDA-Public Use
  Company Number: NVSC2020US241326

PATIENT
  Sex: Female

DRUGS (4)
  1. PIQRAY [Suspect]
     Active Substance: ALPELISIB
     Dosage: 250 MG, QD
     Route: 065
  2. PIQRAY [Suspect]
     Active Substance: ALPELISIB
     Indication: PRODUCT USED FOR UNKNOWN INDICATION
     Dosage: UNK
     Route: 048
  3. PIQRAY [Suspect]
     Active Substance: ALPELISIB
     Dosage: ALTERNATING 300MG 1 DAY, 150MG THE NEXT DAY
     Route: 048
     Dates: start: 20200917
  4. PIQRAY [Suspect]
     Active Substance: ALPELISIB
     Route: 048

REACTIONS (7)
  - Diarrhoea [Unknown]
  - Altered visual depth perception [Unknown]
  - Dry mouth [Unknown]
  - Hyperglycaemia [Unknown]
  - Inappropriate schedule of product administration [Unknown]
  - Ageusia [Unknown]
  - Abdominal discomfort [Unknown]
